FAERS Safety Report 25529616 (Version 1)
Quarter: 2025Q3

REPORT INFORMATION
  Report Type: Spontaneous
  Country: CA (occurrence: CA)
  Receive Date: 20250708
  Receipt Date: 20250708
  Transmission Date: 20251020
  Serious: Yes (Life-Threatening)
  Sender: NOVO NORDISK
  Company Number: None

PATIENT
  Age: 79 Year
  Sex: Male
  Weight: 75 kg

DRUGS (1)
  1. OZEMPIC [Suspect]
     Active Substance: SEMAGLUTIDE
     Indication: Type 2 diabetes mellitus
     Dosage: 0.25 MG, QW
     Route: 030

REACTIONS (4)
  - Diarrhoea [Recovering/Resolving]
  - Nausea [Recovering/Resolving]
  - Vision blurred [Recovering/Resolving]
  - Incorrect route of product administration [Unknown]
